FAERS Safety Report 5133361-9 (Version None)
Quarter: 2006Q4

REPORT INFORMATION
  Report Type: 
  Country: None (occurrence: None)
  Receive Date: 20060831
  Receipt Date: 20060605
  Transmission Date: 20070319
  Serious: No
  Sender: FDA-Public Use
  Company Number: 2006-BP-04940BP

PATIENT
  Sex: Male

DRUGS (8)
  1. SPIRIVA [Suspect]
     Indication: CHRONIC OBSTRUCTIVE PULMONARY DISEASE
     Dosage: SEE IMAGE
     Dates: end: 20050501
  2. SPIRIVA [Suspect]
     Indication: CHRONIC OBSTRUCTIVE PULMONARY DISEASE
     Dosage: SEE IMAGE
     Dates: start: 20060101
  3. SPIRIVA [Suspect]
  4. SPIRIVA [Suspect]
  5. SPIRIVA [Suspect]
  6. ALBUTEROL [Concomitant]
  7. ANDRODERM [Concomitant]
  8. ASPIRIN [Concomitant]

REACTIONS (2)
  - CONSTIPATION [None]
  - DYSPNOEA [None]
